FAERS Safety Report 12974054 (Version 1)
Quarter: 2016Q4

REPORT INFORMATION
  Report Type: Spontaneous
  Country: CH (occurrence: CH)
  Receive Date: 20161124
  Receipt Date: 20161124
  Transmission Date: 20170207
  Serious: Yes (Other)
  Sender: FDA-Public Use
  Company Number: CH-ASTRAZENECA-2016SF22617

PATIENT
  Age: 30196 Day
  Sex: Female

DRUGS (12)
  1. BILOL [Concomitant]
     Active Substance: BISOPROLOL
     Dosage: 2.5MG UNKNOWN
     Route: 048
  2. TORASEMID MEPHA [Concomitant]
     Dosage: 10.0MG UNKNOWN
     Route: 048
  3. LANSOPRAZOL SANDOZ [Concomitant]
     Dosage: 15.0MG UNKNOWN
     Route: 048
  4. DANCOR [Concomitant]
     Active Substance: NICORANDIL
     Dosage: 10.0MG UNKNOWN
     Route: 048
  5. MAGNESIOCARD [Concomitant]
     Active Substance: MAGNESIUM ASPARTATE HYDROCHLORIDE
     Dosage: 10.0MMOL UNKNOWN
     Route: 048
  6. BRILIQUE [Suspect]
     Active Substance: TICAGRELOR
     Indication: THROMBOSIS PROPHYLAXIS
     Route: 048
     Dates: end: 20161027
  7. RAMIPRIL SANDOZ [Concomitant]
     Active Substance: RAMIPRIL
     Dosage: 2.5MG UNKNOWN
     Route: 048
  8. PANTOPRAZOL ACTAVIS [Concomitant]
     Active Substance: PANTOPRAZOLE SODIUM
     Dosage: 20.0MG UNKNOWN
     Route: 048
  9. CLOPIDOGREL [Concomitant]
     Active Substance: CLOPIDOGREL BISULFATE
  10. RAMIPRIL SANDOZ [Concomitant]
     Active Substance: RAMIPRIL
     Dosage: 5.0MG UNKNOWN
     Route: 048
  11. SIFROL ER [Concomitant]
     Active Substance: PRAMIPEXOLE
     Dosage: 0.375MG UNKNOWN
     Route: 048
  12. ASPIRIN. [Concomitant]
     Active Substance: ASPIRIN
     Dosage: 100.0MG UNKNOWN
     Route: 048

REACTIONS (3)
  - Respiratory distress [Unknown]
  - Chest pain [Unknown]
  - Dyspnoea at rest [Unknown]

NARRATIVE: CASE EVENT DATE: 20161026
